FAERS Safety Report 4455250-5 (Version None)
Quarter: 2004Q3

REPORT INFORMATION
  Report Type: 
  Country: None (occurrence: None)
  Receive Date: 20040917
  Receipt Date: 20040907
  Transmission Date: 20050211
  Serious: Yes (Disabling, Other)
  Sender: FDA-Public Use
  Company Number: 2004063250

PATIENT
  Age: 52 Year
  Sex: Female

DRUGS (3)
  1. NEURONTIN [Suspect]
     Indication: HERNIA PAIN
     Dosage: 1200 MG (1 D)
     Dates: start: 20030101
  2. PROPOXYPHENE HCL [Concomitant]
  3. ROFECOXIB [Concomitant]

REACTIONS (3)
  - DRUG INEFFECTIVE [None]
  - SOMNOLENCE [None]
  - VERTIGO [None]
